FAERS Safety Report 16043813 (Version 1)
Quarter: 2019Q1

REPORT INFORMATION
  Report Type: Spontaneous
  Country: US (occurrence: US)
  Receive Date: 20190306
  Receipt Date: 20190306
  Transmission Date: 20190418
  Serious: Yes (Other)
  Sender: FDA-Public Use
  Company Number: PHEH2019US009413

PATIENT
  Sex: Male

DRUGS (1)
  1. TASIGNA [Suspect]
     Active Substance: NILOTINIB
     Indication: CHRONIC MYELOID LEUKAEMIA
     Dosage: 1 DF, BID
     Route: 048

REACTIONS (27)
  - Fatigue [Unknown]
  - Essential hypertension [Unknown]
  - Type V hyperlipidaemia [Unknown]
  - Meningioma [Unknown]
  - Dyspnoea [Unknown]
  - Angina unstable [Unknown]
  - Splenomegaly [Unknown]
  - Lordosis [Unknown]
  - Coronary artery disease [Unknown]
  - Hypoaesthesia [Unknown]
  - Hyperlipidaemia [Unknown]
  - Chest pain [Unknown]
  - Myocardial infarction [Unknown]
  - Hyperhidrosis [Unknown]
  - Hypertension [Unknown]
  - Intermittent claudication [Unknown]
  - Peripheral vascular disorder [Unknown]
  - Intervertebral disc protrusion [Unknown]
  - Atelectasis [Unknown]
  - Abdominal pain lower [Unknown]
  - Hepatic steatosis [Unknown]
  - Pain in extremity [Unknown]
  - Diabetes mellitus [Unknown]
  - Glucose tolerance impaired [Unknown]
  - Dysphagia [Unknown]
  - Constipation [Unknown]
  - Paraesthesia [Unknown]
